FAERS Safety Report 4814668-9 (Version None)
Quarter: 2005Q4

REPORT INFORMATION
  Report Type: 
  Country: None (occurrence: None)
  Receive Date: 20051028
  Receipt Date: 20041213
  Transmission Date: 20060501
  Serious: No
  Sender: FDA-Public Use
  Company Number: US-GLAXOSMITHKLINE-A0537121A

PATIENT
  Age: 54 Year
  Sex: Female

DRUGS (10)
  1. ADVAIR DISKUS 100/50 [Suspect]
     Indication: ASTHMA
     Dosage: 1PUFF PER DAY
     Route: 055
  2. ALBUTEROL [Concomitant]
  3. ACTONEL [Concomitant]
  4. POTASSIUM [Concomitant]
  5. CARDIZEM CD [Concomitant]
  6. SINGULAIR [Concomitant]
  7. LEVOXYL [Concomitant]
  8. CALCIUM GLUCONATE [Concomitant]
  9. VITAMIN [Concomitant]
  10. ASPIRIN [Concomitant]

REACTIONS (3)
  - CHEST DISCOMFORT [None]
  - DRUG INEFFECTIVE [None]
  - PHARMACEUTICAL PRODUCT COMPLAINT [None]
